FAERS Safety Report 7550429-8 (Version None)
Quarter: 2011Q2

REPORT INFORMATION
  Report Type: 
  Country: None (occurrence: None)
  Receive Date: 20110615
  Receipt Date: 20101023
  Transmission Date: 20111010
  Serious: No
  Sender: FDA-Public Use
  Company Number: US-BAUSCH-2010BL006022

PATIENT
  Age: 88 Year
  Sex: Male

DRUGS (2)
  1. BRIMONIDINE TARTRATE [Suspect]
     Indication: INTRAOCULAR PRESSURE INCREASED
     Route: 047
     Dates: start: 20100801, end: 20100901
  2. PRESERVISION AREDS SOFT GELS [Concomitant]
     Indication: VITAMIN SUPPLEMENTATION
     Route: 048

REACTIONS (1)
  - DRUG INEFFECTIVE [None]
